FAERS Safety Report 15263693 (Version 2)
Quarter: 2018Q3

REPORT INFORMATION
  Report Type: Spontaneous
  Country: US (occurrence: US)
  Receive Date: 20180810
  Receipt Date: 20180910
  Transmission Date: 20181010
  Serious: No
  Sender: FDA-Public Use
  Company Number: US-PFIZER INC-2018321357

PATIENT
  Age: 42 Year
  Sex: Female
  Weight: 50.25 kg

DRUGS (15)
  1. PROTONIX [Concomitant]
     Active Substance: PANTOPRAZOLE SODIUM
     Dosage: 20 MG, DAILY
     Route: 048
  2. TRAMADOL HCL [Concomitant]
     Active Substance: TRAMADOL HYDROCHLORIDE
     Indication: PAIN
     Dosage: 50 MG, AS NEEDED, (QID )
     Route: 048
  3. VITAMIN D [Concomitant]
     Active Substance: CHOLECALCIFEROL
     Dosage: 500 IU, 1X/DAY
     Route: 048
  4. AMBIEN CR [Concomitant]
     Active Substance: ZOLPIDEM TARTRATE
     Dosage: 12.5 MG, AS NEEDED, (1 TABLET AT BEDTIME)
     Route: 048
  5. LYRICA [Suspect]
     Active Substance: PREGABALIN
     Dosage: 200 MG, 3X/DAY (TID)
     Route: 048
  6. VISTARIL [Concomitant]
     Active Substance: HYDROXYZINE PAMOATE
     Indication: INSOMNIA
     Dosage: 25 MG, AS NEEDED, (QHS, DISREGARD RX FOR #30)
     Route: 048
  7. CALCIUM CITRATE [Concomitant]
     Active Substance: CALCIUM CITRATE
     Dosage: 1 DF, UNK [CALCIUM CITRATE CHEWY BITE 500?500 MC. UNIT TABLET CHEWABLE]
     Route: 048
  8. FOSAMAX [Concomitant]
     Active Substance: ALENDRONATE SODIUM
     Dosage: 70 MG, WEEKLY
     Route: 048
  9. TYLENOL WITH CODEINE [Concomitant]
     Active Substance: ACETAMINOPHEN\CODEINE PHOSPHATE
     Indication: PAIN
     Dosage: 1 DF, AS NEEDED ([CODEINE PHOSPHATE 30MG]?[PARACETAMOL 300MG] 1 TABLET EVERY 8 HRS PRN)
     Route: 048
  10. PERCOCET [Concomitant]
     Active Substance: ACETAMINOPHEN\OXYCODONE HYDROCHLORIDE
     Dosage: 1 DF, AS NEEDED ([OXYCODONE HYDROCHLORIDE 10MG]?[PARACETAMOL 325MG] 1 TABLET EVERY 6 HRS)
     Route: 048
  11. LYRICA [Suspect]
     Active Substance: PREGABALIN
     Indication: NEURALGIA
     Dosage: 50 MG, 2X/DAY
     Route: 048
  12. LYRICA [Suspect]
     Active Substance: PREGABALIN
     Indication: NEUROPATHY PERIPHERAL
     Dosage: 100 MG, 3X/DAY
  13. FERROUS SULFATE. [Concomitant]
     Active Substance: FERROUS SULFATE
     Dosage: 325 MG, UNK, (1 TABLET BID X 1MONTH)
     Route: 048
  14. LAMICTAL [Concomitant]
     Active Substance: LAMOTRIGINE
     Dosage: 100 MG, DAILY
     Route: 048
  15. NICODERM CQ [Concomitant]
     Active Substance: NICOTINE
     Dosage: 1 DF, 1X/DAY [NICODERM CQ 14 MG/24HR PATCH 24 HOUR 1 PATCH TO SKIN TRANSDERMAL ONCE A DAY]
     Route: 062

REACTIONS (5)
  - Product use issue [Unknown]
  - Chondropathy [Unknown]
  - Memory impairment [Unknown]
  - Fatigue [Not Recovered/Not Resolved]
  - Cognitive disorder [Unknown]
